FAERS Safety Report 17577668 (Version 3)
Quarter: 2021Q1

REPORT INFORMATION
  Report Type: Spontaneous
  Country: US (occurrence: US)
  Receive Date: 20200324
  Receipt Date: 20210301
  Transmission Date: 20210419
  Serious: Yes (Other)
  Sender: FDA-Public Use
  Company Number: US-GILEAD-2020-0456010

PATIENT
  Sex: Male
  Weight: 83.9 kg

DRUGS (48)
  1. VIREAD [Suspect]
     Active Substance: TENOFOVIR DISOPROXIL FUMARATE
     Dosage: UNK
     Route: 048
     Dates: start: 1998, end: 2001
  2. TRUVADA [Suspect]
     Active Substance: EMTRICITABINE\TENOFOVIR DISOPROXIL FUMARATE
     Dosage: UNK
     Route: 048
     Dates: start: 2004, end: 2006
  3. ABACAVIR. [Concomitant]
     Active Substance: ABACAVIR
  4. EDURANT [Concomitant]
     Active Substance: RILPIVIRINE HYDROCHLORIDE
  5. TAMSULOSIN [Concomitant]
     Active Substance: TAMSULOSIN
  6. DESCOVY [Concomitant]
     Active Substance: EMTRICITABINE\TENOFOVIR ALAFENAMIDE FUMARATE
     Indication: HIV INFECTION
     Dosage: UNK
     Route: 048
     Dates: start: 20161104, end: 20171120
  7. PREZCOBIX [Concomitant]
     Active Substance: COBICISTAT\DARUNAVIR ETHANOLATE
  8. CAVERJECT [Concomitant]
     Active Substance: ALPROSTADIL
  9. DOXYCLINE [DOXYCYCLINE] [Concomitant]
     Active Substance: DOXYCYCLINE
  10. FINASTERIDE. [Concomitant]
     Active Substance: FINASTERIDE
  11. ZERIT [Concomitant]
     Active Substance: STAVUDINE
  12. VIREAD [Suspect]
     Active Substance: TENOFOVIR DISOPROXIL FUMARATE
     Indication: HIV INFECTION
     Dosage: UNK
     Route: 048
     Dates: start: 2001
  13. RAMIPRIL. [Concomitant]
     Active Substance: RAMIPRIL
  14. TESTOSTERONE CYPIONATE. [Concomitant]
     Active Substance: TESTOSTERONE CYPIONATE
  15. TRIUMEQ [Concomitant]
     Active Substance: ABACAVIR SULFATE\DOLUTEGRAVIR SODIUM\LAMIVUDINE
  16. EPIVIR [Concomitant]
     Active Substance: LAMIVUDINE
  17. INVIRASE [Concomitant]
     Active Substance: SAQUINAVIR MESYLATE
  18. VIDEX [Concomitant]
     Active Substance: DIDANOSINE
  19. SULFAMETHOXAZOLE [Concomitant]
     Active Substance: SULFAMETHOXAZOLE
  20. LEVAQUIN [Concomitant]
     Active Substance: LEVOFLOXACIN
  21. MULTIVITAMINS [VITAMINS NOS] [Concomitant]
     Active Substance: VITAMINS
  22. INTELENCE [Concomitant]
     Active Substance: ETRAVIRINE
  23. LEVOCARNITINE. [Concomitant]
     Active Substance: LEVOCARNITINE
  24. VIAGRA [Concomitant]
     Active Substance: SILDENAFIL CITRATE
  25. ACYCLOVIR [ACICLOVIR] [Concomitant]
     Active Substance: ACYCLOVIR
  26. NASOCORT [Concomitant]
     Active Substance: BUDESONIDE
  27. AZITHROMYCIN ANHYDROUS. [Concomitant]
     Active Substance: AZITHROMYCIN ANHYDROUS
  28. CIALIS [Concomitant]
     Active Substance: TADALAFIL
  29. CIPRO [Concomitant]
     Active Substance: CIPROFLOXACIN HYDROCHLORIDE
  30. RESCRIPTOR [Concomitant]
     Active Substance: DELAVIRDINE MESYLATE
  31. TIVICAY [Concomitant]
     Active Substance: DOLUTEGRAVIR SODIUM
  32. AMLODIPINE [Concomitant]
     Active Substance: AMLODIPINE BESYLATE
  33. ASPIRIN [ACETYLSALICYLIC ACID] [Concomitant]
     Active Substance: ASPIRIN
  34. AVODART [Concomitant]
     Active Substance: DUTASTERIDE
  35. AMOXICILLIN. [Concomitant]
     Active Substance: AMOXICILLIN
  36. RETROVIR [Concomitant]
     Active Substance: ZIDOVUDINE
  37. BACTRIM [Concomitant]
     Active Substance: SULFAMETHOXAZOLE\TRIMETHOPRIM
  38. TRUVADA [Suspect]
     Active Substance: EMTRICITABINE\TENOFOVIR DISOPROXIL FUMARATE
     Indication: HIV INFECTION
     Dosage: UNK
     Route: 048
     Dates: start: 2001
  39. FLUCONAZOLE. [Concomitant]
     Active Substance: FLUCONAZOLE
  40. OMEPRAZOLE. [Concomitant]
     Active Substance: OMEPRAZOLE
  41. VALACYCLOVIR HCL [Concomitant]
     Active Substance: VALACYCLOVIR HYDROCHLORIDE
  42. VIRACEPT [Concomitant]
     Active Substance: NELFINAVIR MESYLATE
  43. TRUVADA [Suspect]
     Active Substance: EMTRICITABINE\TENOFOVIR DISOPROXIL FUMARATE
     Dosage: UNK
     Route: 048
     Dates: start: 20100106, end: 20160621
  44. FLOMAX [Concomitant]
     Active Substance: TAMSULOSIN HYDROCHLORIDE
  45. CEFTRIAXONE. [Concomitant]
     Active Substance: CEFTRIAXONE
  46. NORVIR [Concomitant]
     Active Substance: RITONAVIR
  47. ZIAGEN [Concomitant]
     Active Substance: ABACAVIR SULFATE
  48. SUSTIVA [Concomitant]
     Active Substance: EFAVIRENZ

REACTIONS (11)
  - Anxiety [Not Recovered/Not Resolved]
  - Pain [Not Recovered/Not Resolved]
  - Anhedonia [Not Recovered/Not Resolved]
  - Osteopenia [Not Recovered/Not Resolved]
  - Emotional distress [Not Recovered/Not Resolved]
  - Hand fracture [Unknown]
  - Bone density decreased [Unknown]
  - Chronic kidney disease [Not Recovered/Not Resolved]
  - Osteoporosis [Not Recovered/Not Resolved]
  - Economic problem [Not Recovered/Not Resolved]
  - Depression [Not Recovered/Not Resolved]

NARRATIVE: CASE EVENT DATE: 1998
